FAERS Safety Report 18935474 (Version 3)
Quarter: 2021Q1

REPORT INFORMATION
  Report Type: Report from Study
  Country: FR (occurrence: FR)
  Receive Date: 20210224
  Receipt Date: 20210322
  Transmission Date: 20210420
  Serious: Yes (Hospitalization)
  Sender: FDA-Public Use
  Company Number: FR-ROCHE-2768823

PATIENT
  Age: 48 Year
  Sex: Female

DRUGS (9)
  1. LODOZ [Concomitant]
     Active Substance: BISOPROLOL FUMARATE\HYDROCHLOROTHIAZIDE
     Dosage: 10MG/6.25 MG ON THE MORNING
  2. TAREG [Concomitant]
     Active Substance: VALSARTAN
     Dosage: IN THE MORNING
  3. OGASTORO [Concomitant]
     Active Substance: LANSOPRAZOLE
     Dosage: IN THE EVENING
  4. ATEZOLIZUMAB. [Suspect]
     Active Substance: ATEZOLIZUMAB
     Indication: CERVIX CARCINOMA
     Dosage: ON 26/JAN/2021, SE RECEIVED LAST DOSE OF ATEZOLIZUMAB (1200 MG) PRIOR TO ONSET OF SERIOUS ADVERSE EV
     Route: 042
     Dates: start: 20210126, end: 20210126
  5. CISPLATINE [Suspect]
     Active Substance: CISPLATIN
     Indication: CERVIX CARCINOMA
     Dosage: ON 02/FEB/2021, SHE RECEIVED LAST DOSE OF CISPLATIN (78 MG) PRIOR TO ONSET OF SERIOUS ADVERSE EVENT.
     Route: 042
     Dates: start: 20210126, end: 20210202
  6. PARACETAMOL [Concomitant]
     Active Substance: ACETAMINOPHEN
  7. OROZAMUDOL [Concomitant]
     Active Substance: TRAMADOL
  8. AERIUS [Concomitant]
     Indication: RASH
  9. POLARAMINE [Concomitant]
     Active Substance: DEXCHLORPHENIRAMINE MALEATE
     Indication: RASH

REACTIONS (4)
  - Diarrhoea [Not Recovered/Not Resolved]
  - Rash [Recovered/Resolved]
  - Thrombocytopenia [Recovered/Resolved]
  - Pyrexia [Recovered/Resolved]

NARRATIVE: CASE EVENT DATE: 20210208
